FAERS Safety Report 7133066-9 (Version None)
Quarter: 2010Q4

REPORT INFORMATION
  Report Type: 
  Country: None (occurrence: None)
  Receive Date: 20101202
  Receipt Date: 20101125
  Transmission Date: 20110411
  Serious: Yes (Hospitalization)
  Sender: FDA-Public Use
  Company Number: B0679651A

PATIENT
  Age: 7 Year
  Sex: Female

DRUGS (4)
  1. LAMOTRIGINE [Suspect]
     Indication: EPILEPSY
     Dosage: 10MG PER DAY
     Route: 048
     Dates: start: 20100112, end: 20100204
  2. CARBAMAZEPINE [Concomitant]
     Indication: EPILEPSY
     Dosage: 260MG PER DAY
     Route: 048
  3. CARBAMAZEPINE [Concomitant]
     Dosage: 400MG PER DAY
     Route: 048
  4. CLOBAZAM [Concomitant]
     Indication: EPILEPSY
     Dosage: 20MG PER DAY
     Route: 048

REACTIONS (7)
  - COGNITIVE DISORDER [None]
  - DEPRESSED LEVEL OF CONSCIOUSNESS [None]
  - ELECTROENCEPHALOGRAM ABNORMAL [None]
  - EPILEPSY [None]
  - PARTIAL SEIZURES [None]
  - SALIVARY HYPERSECRETION [None]
  - STATUS EPILEPTICUS [None]
